FAERS Safety Report 6367353-9 (Version None)
Quarter: 2009Q3

REPORT INFORMATION
  Report Type: 
  Country: None (occurrence: None)
  Receive Date: 20090921
  Receipt Date: 20090904
  Transmission Date: 20100115
  Serious: Yes (Hospitalization)
  Sender: FDA-Public Use
  Company Number: US-ROCHE-655189

PATIENT
  Sex: Female

DRUGS (3)
  1. BONIVA [Suspect]
     Indication: OSTEOPOROSIS
     Route: 065
  2. VITAMIN [Concomitant]
     Dosage: DRUG REPORTED AS VITAMINS
  3. LEXAPRO [Concomitant]
     Dosage: DRUG REPORTED AS LEXIPRO

REACTIONS (5)
  - DECUBITUS ULCER [None]
  - EYE MOVEMENT DISORDER [None]
  - GASTROOESOPHAGEAL REFLUX DISEASE [None]
  - MUSCULOSKELETAL DISORDER [None]
  - PAIN IN EXTREMITY [None]
